FAERS Safety Report 21979524 (Version 1)
Quarter: 2023Q1

REPORT INFORMATION
  Report Type: Spontaneous
  Country: US (occurrence: None)
  Receive Date: 20230209
  Receipt Date: 20230209
  Transmission Date: 20230417
  Serious: Yes (Hospitalization)
  Sender: FDA-Public Use
  Company Number: None

PATIENT
  Age: 35 Year
  Sex: Male
  Weight: 123.4 kg

DRUGS (2)
  1. SULFAMETHOXAZOLE\TRIMETHOPRIM [Suspect]
     Active Substance: SULFAMETHOXAZOLE\TRIMETHOPRIM
     Indication: Abscess
     Dosage: FREQUENCY : TWICE A DAY;?
  2. CEPHALEXIN [Suspect]
     Active Substance: CEPHALEXIN
     Indication: Abscess
     Dosage: FREQUENCY : 4 TIMES A DAY;?
     Route: 048

REACTIONS (13)
  - Rash [None]
  - Rash papular [None]
  - Purpura [None]
  - Rash [None]
  - Nausea [None]
  - Vomiting [None]
  - Pyrexia [None]
  - Chills [None]
  - Throat irritation [None]
  - Pharyngeal erythema [None]
  - Scrotal erythema [None]
  - Eyelid disorder [None]
  - Rash erythematous [None]

NARRATIVE: CASE EVENT DATE: 20221102
